FAERS Safety Report 21465552 (Version 2)
Quarter: 2022Q4

REPORT INFORMATION
  Report Type: Spontaneous
  Country: US (occurrence: US)
  Receive Date: 20221017
  Receipt Date: 20221021
  Transmission Date: 20230113
  Serious: Yes (Life-Threatening, Hospitalization, Other)
  Sender: FDA-Public Use
  Company Number: US-TORRENT-00012041

PATIENT
  Age: 53 Year
  Sex: Female

DRUGS (1)
  1. VENLAFAXINE [Suspect]
     Active Substance: VENLAFAXINE HYDROCHLORIDE
     Indication: Depression
     Dosage: UNKNOWN
     Route: 065

REACTIONS (4)
  - Intentional overdose [Unknown]
  - Serotonin syndrome [Recovered/Resolved]
  - Acute respiratory distress syndrome [Recovering/Resolving]
  - Electrocardiogram QT prolonged [Recovering/Resolving]
